FAERS Safety Report 18743245 (Version 4)
Quarter: 2021Q1

REPORT INFORMATION
  Report Type: Report from Study
  Country: None (occurrence: US)
  Receive Date: 20210115
  Receipt Date: 20210303
  Transmission Date: 20210419
  Serious: Yes (Other)
  Sender: FDA-Public Use
  Company Number: US-ABBVIE-21K-163-3727935-00

PATIENT
  Sex: Female

DRUGS (1)
  1. HUMIRA [Suspect]
     Active Substance: ADALIMUMAB
     Indication: PSORIATIC ARTHROPATHY
     Route: 058

REACTIONS (14)
  - Carpal tunnel syndrome [Not Recovered/Not Resolved]
  - Rash [Recovered/Resolved]
  - Spinal osteoarthritis [Not Recovered/Not Resolved]
  - Focal dyscognitive seizures [Unknown]
  - Fibromyalgia [Not Recovered/Not Resolved]
  - Rheumatoid arthritis [Unknown]
  - Rash [Not Recovered/Not Resolved]
  - Medication error [Unknown]
  - Memory impairment [Not Recovered/Not Resolved]
  - Amnesia [Unknown]
  - Crying [Unknown]
  - Fibromyalgia [Recovered/Resolved]
  - Insomnia [Unknown]
  - Tremor [Unknown]

NARRATIVE: CASE EVENT DATE: 2019
